FAERS Safety Report 8219425-1 (Version None)
Quarter: 2012Q1

REPORT INFORMATION
  Report Type: 
  Country: None (occurrence: None)
  Receive Date: 20120319
  Receipt Date: 20120313
  Transmission Date: 20120608
  Serious: Yes (Other)
  Sender: FDA-Public Use
  Company Number: FR-PFIZER INC-2012065948

PATIENT
  Age: 3 Month
  Sex: Male

DRUGS (1)
  1. PEDIATRIC ADVIL [Suspect]
     Indication: PYREXIA
     Dosage: UNK

REACTIONS (4)
  - URINE OUTPUT DECREASED [None]
  - URINARY RETENTION [None]
  - POOR QUALITY DRUG ADMINISTERED [None]
  - BLADDER DILATATION [None]
